FAERS Safety Report 12211334 (Version 2)
Quarter: 2016Q2

REPORT INFORMATION
  Report Type: Spontaneous
  Country: US (occurrence: US)
  Receive Date: 20160325
  Receipt Date: 20160401
  Transmission Date: 20160815
  Serious: Yes (Other)
  Sender: FDA-Public Use
  Company Number: US-PFIZER INC-2016175127

PATIENT
  Age: 73 Year
  Sex: Female
  Weight: 36.74 kg

DRUGS (1)
  1. NEURONTIN [Suspect]
     Active Substance: GABAPENTIN
     Indication: TRIGEMINAL NEURALGIA
     Dosage: 200 MG IN THE MORNING AND 1100 MG AT NIGHT

REACTIONS (8)
  - Insomnia [Unknown]
  - Pain [Unknown]
  - Hyperhidrosis [Unknown]
  - Weight decreased [Unknown]
  - Anxiety [Unknown]
  - Nausea [Unknown]
  - Product use issue [Unknown]
  - Malaise [Unknown]

NARRATIVE: CASE EVENT DATE: 201508
